FAERS Safety Report 11181022 (Version 1)
Quarter: 2015Q2

REPORT INFORMATION
  Report Type: Spontaneous
  Country: US (occurrence: None)
  Receive Date: 20150610
  Receipt Date: 20150610
  Transmission Date: 20150821
  Serious: Yes (Disabling)
  Sender: FDA-Public Use
  Company Number: None

PATIENT
  Age: 35 Year
  Sex: Female
  Weight: 58.51 kg

DRUGS (2)
  1. NATURE-THROID [Concomitant]
     Active Substance: THYROID, PORCINE
  2. ZOLOFT [Suspect]
     Active Substance: SERTRALINE HYDROCHLORIDE
     Indication: POST-TRAUMATIC STRESS DISORDER
     Route: 048
     Dates: start: 20140718, end: 20150428

REACTIONS (19)
  - Neuralgia [None]
  - Hypoacusis [None]
  - Gait disturbance [None]
  - Impaired work ability [None]
  - Impaired driving ability [None]
  - Exercise tolerance decreased [None]
  - Educational problem [None]
  - Hemiparesis [None]
  - Dysphemia [None]
  - Activities of daily living impaired [None]
  - Visual acuity reduced [None]
  - Memory impairment [None]
  - Tinnitus [None]
  - Reading disorder [None]
  - Seizure [None]
  - Tic [None]
  - Hypoaesthesia [None]
  - Vertigo [None]
  - Amnesia [None]

NARRATIVE: CASE EVENT DATE: 20141213
